FAERS Safety Report 24977625 (Version 1)
Quarter: 2025Q1

REPORT INFORMATION
  Report Type: Spontaneous
  Country: IE (occurrence: IE)
  Receive Date: 20250217
  Receipt Date: 20250217
  Transmission Date: 20250408
  Serious: Yes (Death, Hospitalization, Other)
  Sender: MYLAN
  Company Number: IE-NOVOPROD-1363440

PATIENT
  Age: 66 Year
  Sex: Female
  Weight: 85.7 kg

DRUGS (5)
  1. METFORMIN [Suspect]
     Active Substance: METFORMIN HYDROCHLORIDE
     Indication: Type 2 diabetes mellitus
     Route: 065
     Dates: start: 2016
  2. OZEMPIC [Suspect]
     Active Substance: SEMAGLUTIDE
     Indication: Weight control
     Route: 065
     Dates: start: 20230919
  3. OZEMPIC [Suspect]
     Active Substance: SEMAGLUTIDE
     Indication: Type 2 diabetes mellitus
     Route: 065
     Dates: start: 20231019
  4. OZEMPIC [Suspect]
     Active Substance: SEMAGLUTIDE
     Route: 065
     Dates: start: 20231026
  5. LOSARTAN [Suspect]
     Active Substance: LOSARTAN
     Indication: Product used for unknown indication
     Route: 065

REACTIONS (16)
  - Organ failure [Fatal]
  - Electrolyte imbalance [Fatal]
  - Metabolic acidosis [Fatal]
  - Lactic acidosis [Fatal]
  - Hypochloraemia [Fatal]
  - Euglycaemic diabetic ketoacidosis [Fatal]
  - Urinary tract infection [Fatal]
  - Vomiting [Fatal]
  - Hypovolaemia [Unknown]
  - Hypotension [Unknown]
  - Acute kidney injury [Unknown]
  - Asthenia [Unknown]
  - Dehydration [Unknown]
  - Nausea [Unknown]
  - Inappropriate schedule of product administration [Unknown]
  - Off label use [Unknown]

NARRATIVE: CASE EVENT DATE: 20230919
